APPROVED DRUG PRODUCT: TELMISARTAN
Active Ingredient: TELMISARTAN
Strength: 20MG
Dosage Form/Route: TABLET;ORAL
Application: A208605 | Product #001 | TE Code: AB
Applicant: CADILA PHARMACEUTICALS LTD
Approved: Jul 25, 2017 | RLD: No | RS: No | Type: RX